FAERS Safety Report 6024325-1 (Version None)
Quarter: 2008Q4

REPORT INFORMATION
  Report Type: 
  Country: None (occurrence: None)
  Receive Date: 20081222
  Receipt Date: 20081119
  Transmission Date: 20090506
  Serious: No
  Sender: FDA-Public Use
  Company Number: SPV1-2008-02578

PATIENT
  Age: 16 Year
  Sex: Female
  Weight: 69.4 kg

DRUGS (8)
  1. VYVANSE [Suspect]
     Indication: ATTENTION DEFICIT/HYPERACTIVITY DISORDER
     Dosage: 50 MG, 1X/DAY:QD, ORAL : 50 MG, 1X/DAY:QD, ORAL : 50 MG, 1X/DAY:QD, ORAL
     Route: 048
     Dates: start: 20080701, end: 20081107
  2. VYVANSE [Suspect]
     Indication: ATTENTION DEFICIT/HYPERACTIVITY DISORDER
     Dosage: 50 MG, 1X/DAY:QD, ORAL : 50 MG, 1X/DAY:QD, ORAL : 50 MG, 1X/DAY:QD, ORAL
     Route: 048
     Dates: start: 20081112, end: 20081114
  3. VYVANSE [Suspect]
     Indication: ATTENTION DEFICIT/HYPERACTIVITY DISORDER
     Dosage: 50 MG, 1X/DAY:QD, ORAL : 50 MG, 1X/DAY:QD, ORAL : 50 MG, 1X/DAY:QD, ORAL
     Route: 048
     Dates: start: 20081117
  4. ADDERALL XR (AMFETAMINE ASPARTATE, AMFETAMINE SULFATE, DEXAMFETAMINE S [Concomitant]
  5. IBUPROFEN [Concomitant]
  6. ACETAMINOPHEN [Concomitant]
  7. CEFTIN [Concomitant]
  8. GUAIFENESIN [Concomitant]

REACTIONS (5)
  - BLOOD GLUCOSE DECREASED [None]
  - CHEST PAIN [None]
  - OFF LABEL USE [None]
  - PALPITATIONS [None]
  - PANIC ATTACK [None]
